FAERS Safety Report 18437428 (Version 3)
Quarter: 2020Q4

REPORT INFORMATION
  Report Type: Report from Study
  Country: US (occurrence: US)
  Receive Date: 20201028
  Receipt Date: 20201203
  Transmission Date: 20210114
  Serious: No
  Sender: FDA-Public Use
  Company Number: NVSC2020US289418

PATIENT
  Sex: Male

DRUGS (1)
  1. ENTRESTO [Suspect]
     Active Substance: SACUBITRIL\VALSARTAN
     Indication: PRODUCT USED FOR UNKNOWN INDICATION
     Dosage: 50 MG, BID (24.26 MG)
     Route: 048
     Dates: start: 2020

REACTIONS (6)
  - Flatulence [Unknown]
  - Dizziness postural [Unknown]
  - Cough [Unknown]
  - Nasal congestion [Unknown]
  - Diarrhoea [Unknown]
  - Product dose omission issue [Unknown]
